FAERS Safety Report 16903032 (Version 2)
Quarter: 2019Q4

REPORT INFORMATION
  Report Type: Spontaneous
  Country: JP (occurrence: JP)
  Receive Date: 20191010
  Receipt Date: 20191120
  Transmission Date: 20200122
  Serious: Yes (Other)
  Sender: FDA-Public Use
  Company Number: JP-ROCHE-2286140

PATIENT
  Age: 39 Year
  Sex: Female
  Weight: 80 kg

DRUGS (3)
  1. ACTEMRA [Suspect]
     Active Substance: TOCILIZUMAB
     Indication: STILL^S DISEASE
     Route: 041
     Dates: start: 20190311, end: 20190325
  2. THYRADIN [Concomitant]
     Active Substance: LEVOTHYROXINE
     Route: 048
  3. PREDONINE [Concomitant]
     Active Substance: PREDNISOLONE
     Route: 048
     Dates: start: 20190304

REACTIONS (5)
  - Off label use [Unknown]
  - Intentional product use issue [Unknown]
  - Abortion threatened [Unknown]
  - Premature delivery [Unknown]
  - Maternal exposure during pregnancy [Unknown]

NARRATIVE: CASE EVENT DATE: 20190331
